FAERS Safety Report 24739951 (Version 3)
Quarter: 2025Q1

REPORT INFORMATION
  Report Type: Spontaneous
  Country: CA (occurrence: CA)
  Receive Date: 20241216
  Receipt Date: 20250226
  Transmission Date: 20250409
  Serious: Yes (Congenital Anomaly)
  Sender: NOVARTIS
  Company Number: CA-002147023-NVSC2024CA235173

PATIENT
  Sex: Female

DRUGS (4)
  1. KESIMPTA [Suspect]
     Active Substance: OFATUMUMAB
     Indication: Foetal exposure during pregnancy
     Route: 064
     Dates: start: 20220722, end: 20240205
  2. VITAMIN D [Concomitant]
     Active Substance: VITAMIN D NOS
     Indication: Foetal exposure during pregnancy
     Route: 050
  3. DIETARY SUPPLEMENT [Concomitant]
     Active Substance: DIETARY SUPPLEMENT
     Indication: Foetal exposure during pregnancy
     Route: 050
  4. IRON [Concomitant]
     Active Substance: IRON
     Indication: Foetal exposure during pregnancy
     Route: 050

REACTIONS (4)
  - Pelvic kidney [Unknown]
  - Jaundice [Recovered/Resolved]
  - Foetal exposure during pregnancy [Unknown]
  - Exposure via breast milk [Unknown]
